FAERS Safety Report 15868320 (Version 1)
Quarter: 2019Q1

REPORT INFORMATION
  Report Type: Spontaneous
  Country: GB (occurrence: GB)
  Receive Date: 20190125
  Receipt Date: 20190125
  Transmission Date: 20190417
  Serious: Yes (Disabling)
  Sender: FDA-Public Use
  Company Number: GB-PFIZER INC-2019028764

PATIENT
  Age: 78 Year
  Sex: Male
  Weight: 102 kg

DRUGS (12)
  1. PARACETAMOL [Concomitant]
     Active Substance: ACETAMINOPHEN
     Indication: PAIN
     Dosage: 2 DF, AS NEEDED (2 FOUR TIMES A DAY WHEN REQUIRED FOR PAIN)
     Dates: start: 20170519
  2. DIAZEPAM. [Concomitant]
     Active Substance: DIAZEPAM
     Dosage: AS NEEDED (ONE OR TWO TABLET TO BE TAKEN WHEN NEEDED)
     Dates: start: 20181214, end: 20181218
  3. GABAPENTIN. [Concomitant]
     Active Substance: GABAPENTIN
     Dosage: UNK (TO USE INCREASING  DOSE TO 600 MG TDS EVENTUALL...)
     Dates: start: 20180618
  4. METHOTREXATE SODIUM. [Suspect]
     Active Substance: METHOTREXATE SODIUM
     Dosage: 20 MG, WEEKLY (20MG (EIGHT TABLETS))
     Dates: start: 20180720, end: 20181231
  5. LEVOTHYROXINE. [Concomitant]
     Active Substance: LEVOTHYROXINE
     Dosage: 1 DF, 1X/DAY
     Dates: start: 20180618
  6. CODEINE PHOSPHATE [Concomitant]
     Active Substance: CODEINE PHOSPHATE
     Dosage: AS NEEDED (1-2 WHEN REQUIRED IF REQUIRED EVERY 6 HOURS)
     Dates: start: 20161024
  7. PREDNISOLONE. [Concomitant]
     Active Substance: PREDNISOLONE
     Dosage: 6 DF, 1X/DAY (IN THE MORNING EVERY DAY FOR ONE WEEK)
     Dates: start: 20180712
  8. RANITIDINE. [Concomitant]
     Active Substance: RANITIDINE
     Dosage: 2 DF, 1X/DAY
     Dates: start: 20170519
  9. PROPRANOLOL [Concomitant]
     Active Substance: PROPRANOLOL HYDROCHLORIDE
     Dosage: (TAKE ONE UP TO 3 TIMES/DAY)
     Dates: start: 20181213
  10. AMOXICILLIN. [Concomitant]
     Active Substance: AMOXICILLIN
     Dosage: 3 DF, 1X/DAY
     Dates: start: 20180918, end: 20180920
  11. AMITRIPTYLINE HYDROCHLORIDE. [Concomitant]
     Active Substance: AMITRIPTYLINE HYDROCHLORIDE
     Dosage: 1 DF, 1X/DAY (NIGHTLY)
     Dates: start: 20180618
  12. FOLIC ACID. [Concomitant]
     Active Substance: FOLIC ACID
     Dosage: (ONE TABLET ONCE DAILY EXCEPT ON THE DAY THAT ..)
     Dates: start: 20180712

REACTIONS (2)
  - Anxiety [Unknown]
  - Panic disorder [Recovering/Resolving]

NARRATIVE: CASE EVENT DATE: 20181231
